FAERS Safety Report 4720529-6 (Version None)
Quarter: 2005Q3

REPORT INFORMATION
  Report Type: 
  Country: None (occurrence: None)
  Receive Date: 20050721
  Receipt Date: 20050712
  Transmission Date: 20060218
  Serious: Yes (Other)
  Sender: FDA-Public Use
  Company Number: PHEH2005US07735

PATIENT
  Age: 77 Year
  Sex: Male

DRUGS (1)
  1. ZOMETA [Suspect]
     Indication: MULTIPLE MYELOMA
     Dosage: UNK, UNK
     Dates: start: 20010101, end: 20041201

REACTIONS (4)
  - ANOREXIA [None]
  - NAUSEA [None]
  - THROAT IRRITATION [None]
  - TOOTH DISORDER [None]
